FAERS Safety Report 9592975 (Version 1)
Quarter: 2013Q4

REPORT INFORMATION
  Report Type: Spontaneous
  Country: US (occurrence: None)
  Receive Date: 20131002
  Receipt Date: 20131002
  Transmission Date: 20140711
  Serious: Yes (Hospitalization)
  Sender: FDA-Public Use
  Company Number: ALK-2013-001999

PATIENT
  Sex: Female

DRUGS (1)
  1. VIVITROL [Suspect]
     Indication: ALCOHOLISM
     Route: 030

REACTIONS (6)
  - Confusional state [None]
  - Vision blurred [None]
  - Nausea [None]
  - Dizziness [None]
  - Headache [None]
  - Gastrointestinal disorder [None]
